FAERS Safety Report 4404693-4 (Version None)
Quarter: 2004Q3

REPORT INFORMATION
  Report Type: 
  Country: None (occurrence: None)
  Receive Date: 20040720
  Receipt Date: 20040107
  Transmission Date: 20050211
  Serious: No
  Sender: FDA-Public Use
  Company Number: LUP-0002 (0) 2004-00039

PATIENT
  Age: 31 Year
  Sex: Male

DRUGS (8)
  1. CEFUROXIME AXETIL (CEFUROXIME AXETIL) (500 MILLIGRAM, TABLETS) [Suspect]
     Indication: SINUSITIS
     Dosage: 1000 MG (500 MG, 2 IN 1 D), ORAL
     Route: 048
     Dates: start: 20040102, end: 20040107
  2. PRILOSEC [Concomitant]
  3. PAMINE (HYOSCINE METHOBROMIDE) (PILL) [Concomitant]
  4. ASTELIN (AZELASTINE HYDROCHLORIDE) (INHALANT) [Concomitant]
  5. STAHIST [Concomitant]
  6. LIPITOR [Concomitant]
  7. COLACE (DOCUSATE SODIUM) [Concomitant]
  8. CEFUROXIME [Concomitant]

REACTIONS (2)
  - ABDOMINAL PAIN UPPER [None]
  - PHARMACEUTICAL PRODUCT COMPLAINT [None]
